FAERS Safety Report 20801353 (Version 2)
Quarter: 2022Q2

REPORT INFORMATION
  Report Type: Spontaneous
  Country: US (occurrence: US)
  Receive Date: 20220509
  Receipt Date: 20220601
  Transmission Date: 20220721
  Serious: No
  Sender: FDA-Public Use
  Company Number: US-009507513-2204USA009777

PATIENT
  Age: 68 Year
  Sex: Male
  Weight: 115.65 kg

DRUGS (2)
  1. VERQUVO [Suspect]
     Active Substance: VERICIGUAT
     Indication: Cardiac failure congestive
     Dosage: 5 MILLIGRAM, DAILY
     Route: 048
     Dates: start: 20220421, end: 20220426
  2. VERQUVO [Suspect]
     Active Substance: VERICIGUAT
     Indication: Ischaemic cardiomyopathy

REACTIONS (5)
  - Dizziness [Recovered/Resolved]
  - Hypotension [Unknown]
  - Ill-defined disorder [Unknown]
  - Diarrhoea [Recovered/Resolved]
  - Flushing [Recovered/Resolved]

NARRATIVE: CASE EVENT DATE: 20220401
